FAERS Safety Report 19866453 (Version 1)
Quarter: 2021Q3

REPORT INFORMATION
  Report Type: Spontaneous
  Country: US (occurrence: US)
  Receive Date: 20210922
  Receipt Date: 20210922
  Transmission Date: 20211014
  Serious: No
  Sender: FDA-Public Use
  Company Number: None

PATIENT
  Age: 73 Year
  Sex: Female
  Weight: 87.75 kg

DRUGS (9)
  1. PREDNISONE 10MG [Concomitant]
     Active Substance: PREDNISONE
  2. METOPROLOL TARTRATE 100MG [Concomitant]
     Active Substance: METOPROLOL TARTRATE
  3. MIRTAZAPINE 15MG [Concomitant]
     Active Substance: MIRTAZAPINE
  4. ALPRAZOLAM 1MG [Concomitant]
     Active Substance: ALPRAZOLAM
  5. IBUPROFEN 600MG [Concomitant]
     Active Substance: IBUPROFEN
  6. POTASSIUM CHLORIDE ER 10MEQ [Concomitant]
     Active Substance: POTASSIUM CHLORIDE
  7. CAPECITABINE. [Suspect]
     Active Substance: CAPECITABINE
     Indication: BREAST CANCER
     Dosage: ?          OTHER FREQUENCY:BID FOR 14/21 DAYS;?
     Route: 048
     Dates: start: 20210612
  8. AMIODARONE 200MG [Concomitant]
     Active Substance: AMIODARONE
  9. VITAMIN D [Concomitant]
     Active Substance: VITAMIN D NOS

REACTIONS (1)
  - Constipation [None]

NARRATIVE: CASE EVENT DATE: 20210922
